FAERS Safety Report 16253596 (Version 1)
Quarter: 2019Q2

REPORT INFORMATION
  Report Type: Spontaneous
  Country: DE (occurrence: DE)
  Receive Date: 20190430
  Receipt Date: 20190430
  Transmission Date: 20190711
  Serious: Yes (Other)
  Sender: FDA-Public Use
  Company Number: DE-JNJFOC-20190441179

PATIENT
  Age: 5 Decade
  Sex: Female

DRUGS (2)
  1. REGAINE FRAUEN 2% [Suspect]
     Active Substance: MINOXIDIL
     Route: 061
  2. REGAINE FRAUEN 2% [Suspect]
     Active Substance: MINOXIDIL
     Indication: ALOPECIA
     Route: 061
     Dates: start: 2019, end: 20190403

REACTIONS (2)
  - Arrhythmia [Recovered/Resolved]
  - Hypertension [Recovered/Resolved]

NARRATIVE: CASE EVENT DATE: 2019
